FAERS Safety Report 11582936 (Version 1)
Quarter: 2015Q4

REPORT INFORMATION
  Report Type: Spontaneous
  Country: US (occurrence: US)
  Receive Date: 20151001
  Receipt Date: 20151001
  Transmission Date: 20160304
  Serious: No
  Sender: FDA-Public Use
  Company Number: US-ROCHE-677455

PATIENT
  Sex: Male
  Weight: 81.6 kg

DRUGS (2)
  1. RIBASPHERE RIBAPAK [Suspect]
     Active Substance: RIBAVIRIN
     Indication: HEPATITIS C
     Route: 048
  2. PEGASYS [Suspect]
     Active Substance: PEGINTERFERON ALFA-2A
     Indication: HEPATITIS C
     Dosage: FORM: PFS
     Route: 058

REACTIONS (8)
  - Decreased appetite [Unknown]
  - Dyspnoea exertional [Unknown]
  - Insomnia [Unknown]
  - Cough [Unknown]
  - Irritability [Unknown]
  - Dysgeusia [Unknown]
  - Fatigue [Unknown]
  - Weight decreased [Unknown]
